FAERS Safety Report 9997701 (Version 10)
Quarter: 2014Q3

REPORT INFORMATION
  Report Type: Spontaneous
  Country: US (occurrence: US)
  Receive Date: 20140311
  Receipt Date: 20140731
  Transmission Date: 20150326
  Serious: No
  Sender: FDA-Public Use
  Company Number: US-PFIZER INC-2014067150

PATIENT
  Age: 61 Year
  Sex: Male
  Weight: 78.91 kg

DRUGS (6)
  1. GLYBURIDE. [Concomitant]
     Active Substance: GLYBURIDE
     Indication: DIABETES MELLITUS
     Dosage: 5 MG, (TWO TABLETS A DAY)
     Route: 048
     Dates: start: 201401
  2. PEPCID [Concomitant]
     Active Substance: FAMOTIDINE
     Dosage: UNK
  3. FISH OIL [Concomitant]
     Active Substance: FISH OIL
     Dosage: UNK
  4. TESTOSTERONE. [Concomitant]
     Active Substance: TESTOSTERONE
     Dosage: UNK
  5. VITAMIN E [Concomitant]
     Active Substance: .ALPHA.-TOCOPHEROL
     Dosage: UNK
  6. SUTENT [Suspect]
     Active Substance: SUNITINIB MALATE
     Indication: RENAL CANCER
     Dosage: 50 MG, 1X/DAY
     Route: 048
     Dates: start: 20140219, end: 20140610

REACTIONS (21)
  - Vomiting [Unknown]
  - Nail discolouration [Unknown]
  - Hair colour changes [Unknown]
  - Blood pressure increased [Not Recovered/Not Resolved]
  - Diarrhoea [Unknown]
  - Disease progression [Unknown]
  - Glossodynia [Unknown]
  - Weight decreased [Unknown]
  - Renal cancer [Unknown]
  - Weight increased [Not Recovered/Not Resolved]
  - Fatigue [Unknown]
  - Cough [Unknown]
  - Dyspepsia [Unknown]
  - Dizziness [Unknown]
  - Herpes zoster [Unknown]
  - Erythema [Unknown]
  - Blood glucose decreased [Not Recovered/Not Resolved]
  - Oral pain [Unknown]
  - Chest pain [Unknown]
  - Asthenia [Unknown]
  - Bone pain [Recovered/Resolved]

NARRATIVE: CASE EVENT DATE: 2014
